FAERS Safety Report 13320537 (Version 1)
Quarter: 2017Q1

REPORT INFORMATION
  Report Type: Spontaneous
  Country: US (occurrence: US)
  Receive Date: 20170309
  Receipt Date: 20170309
  Transmission Date: 20170428
  Serious: Yes (Hospitalization, Other)
  Sender: FDA-Public Use
  Company Number: US-B.I. PHARMACEUTICALS,INC./RIDGEFIELD-2017-BI-012362

PATIENT
  Age: 73 Year
  Sex: Female

DRUGS (13)
  1. MUCINEX [Concomitant]
     Active Substance: GUAIFENESIN
     Indication: COUGH
     Route: 065
  2. CITALOPRAM [Concomitant]
     Active Substance: CITALOPRAM HYDROBROMIDE
     Indication: DEPRESSION
  3. ALBUTEROL SULFATE NEBULIZER [Concomitant]
     Indication: CHRONIC OBSTRUCTIVE PULMONARY DISEASE
     Dosage: ONE TREATMENT TID AS NEEDED;  FORMULATION: INHALATION AEROSOL;
     Route: 055
  4. FEXOFENADINE [Concomitant]
     Active Substance: FEXOFENADINE\FEXOFENADINE HYDROCHLORIDE
     Indication: MULTIPLE ALLERGIES
     Dosage: ONE TABLET DAILY;  FORM STRENGTH: 180MG; FORMULATION: CAPLET
     Route: 048
  5. SPIRIVA [Suspect]
     Active Substance: TIOTROPIUM BROMIDE MONOHYDRATE
     Route: 048
     Dates: start: 20170302, end: 20170302
  6. CITALOPRAM [Concomitant]
     Active Substance: CITALOPRAM HYDROBROMIDE
     Indication: ANXIETY
     Dosage: ONE CAPLET DAILY;  FORM STRENGTH: 20MG; FORMULATION: CAPLET
     Route: 048
     Dates: start: 2015
  7. SPIRIVA [Suspect]
     Active Substance: TIOTROPIUM BROMIDE MONOHYDRATE
     Indication: CHRONIC OBSTRUCTIVE PULMONARY DISEASE
     Dosage: 2 INHALATIONS FROM ONE CAPSULE DAILY;  FORM STRENGTH: 18 MCG; FORMULATION: CAPSULE? ADMINISTRATION C
     Route: 055
     Dates: start: 2014
  8. FLORAJEN [Concomitant]
     Indication: PROBIOTIC THERAPY
     Dosage: ONE CAPSULE DAILY;  FORM STRENGTH: 460MG; FORMULATION: CAPSULE
     Route: 048
     Dates: start: 2015
  9. LOSARTAN. [Concomitant]
     Active Substance: LOSARTAN
     Indication: HYPERTENSION
     Dosage: ONE CAPLET DAILY;  FORM STRENGTH: 50MG; FORMULATION: CAPLET
     Route: 048
  10. GUIAFESSIN [Concomitant]
     Indication: PRODUCT USED FOR UNKNOWN INDICATION
     Route: 065
  11. ALBUTEROL INALER [Concomitant]
     Indication: DRUG THERAPY
     Route: 065
  12. ACYCLOVIR. [Concomitant]
     Active Substance: ACYCLOVIR
     Indication: ANTIVIRAL TREATMENT
     Dosage: ONE CAPLET BID;  FORM STRENGTH: 400MG; FORMULATION: CAPLET
     Route: 048
     Dates: start: 2015
  13. FLUTICASONE. [Concomitant]
     Active Substance: FLUTICASONE
     Indication: CHRONIC OBSTRUCTIVE PULMONARY DISEASE
     Dosage: TWO INHALATIONS BID;  FORM STRENGTH: 250/50MCG; FORMULATION: INHALATION AEROSOL
     Route: 055

REACTIONS (6)
  - Incorrect route of drug administration [Recovered/Resolved]
  - Anxiety [Unknown]
  - Chronic obstructive pulmonary disease [Recovered/Resolved]
  - Chronic lymphocytic leukaemia [Not Recovered/Not Resolved]
  - Influenza [Unknown]
  - Depression [Unknown]

NARRATIVE: CASE EVENT DATE: 2015
